FAERS Safety Report 9632166 (Version 1)
Quarter: 2013Q4

REPORT INFORMATION
  Report Type: Spontaneous
  Country: US (occurrence: US)
  Receive Date: 20131018
  Receipt Date: 20131018
  Transmission Date: 20140711
  Serious: Yes (Hospitalization)
  Sender: FDA-Public Use
  Company Number: US-SA-2013SA104128

PATIENT
  Age: 18 Year
  Sex: Male

DRUGS (1)
  1. CEREZYME [Suspect]
     Indication: GAUCHER^S DISEASE
     Route: 042

REACTIONS (4)
  - Road traffic accident [Unknown]
  - Multiple injuries [Unknown]
  - Skull fracture [Unknown]
  - Contusion [Unknown]
